FAERS Safety Report 12999034 (Version 1)
Quarter: 2016Q4

REPORT INFORMATION
  Report Type: Spontaneous
  Country: US (occurrence: US)
  Receive Date: 20161205
  Receipt Date: 20161205
  Transmission Date: 20170207
  Serious: No
  Sender: FDA-Public Use
  Company Number: GXBR2016US003185

PATIENT
  Sex: Female
  Weight: 75.28 kg

DRUGS (1)
  1. RANITIDINE HCL TABLETS (I) [Suspect]
     Active Substance: RANITIDINE HYDROCHLORIDE
     Indication: CHEST DISCOMFORT
     Dosage: 300 MG, UNK
     Route: 048
     Dates: start: 20161017

REACTIONS (1)
  - Throat irritation [Not Recovered/Not Resolved]
